FAERS Safety Report 16897205 (Version 3)
Quarter: 2019Q4

REPORT INFORMATION
  Report Type: Spontaneous
  Country: EE (occurrence: EE)
  Receive Date: 20191009
  Receipt Date: 20191022
  Transmission Date: 20200122
  Serious: Yes (Other)
  Sender: FDA-Public Use
  Company Number: EE-009507513-1910EST002917

PATIENT
  Age: 37 Year
  Sex: Female
  Weight: 91 kg

DRUGS (2)
  1. NEXPLANON [Suspect]
     Active Substance: ETONOGESTREL
     Dosage: 1 IMPLANT, (IN SUPERIOR TO THE SULCUS BICIPITALIS MEDIALIS)
     Dates: start: 20190218
  2. NEXPLANON [Suspect]
     Active Substance: ETONOGESTREL
     Indication: CONTRACEPTION
     Dosage: 1 IMPLANT
     Route: 059
     Dates: start: 20190111, end: 20190218

REACTIONS (9)
  - Unintended pregnancy [Recovered/Resolved]
  - Device difficult to use [Unknown]
  - Pregnancy with implant contraceptive [Recovered/Resolved]
  - Haemorrhage [Unknown]
  - Device deployment issue [Unknown]
  - Abortion spontaneous [Unknown]
  - Complication associated with device [Unknown]
  - Peripheral swelling [Unknown]
  - Device expulsion [Recovered/Resolved with Sequelae]

NARRATIVE: CASE EVENT DATE: 201902
